FAERS Safety Report 8137527-5 (Version None)
Quarter: 2012Q1

REPORT INFORMATION
  Report Type: 
  Country: None (occurrence: None)
  Receive Date: 20120215
  Receipt Date: 20120214
  Transmission Date: 20120608
  Serious: Yes (Other)
  Sender: FDA-Public Use
  Company Number: US-JNJFOC-20120107705

PATIENT
  Age: 34 Year
  Sex: Female

DRUGS (11)
  1. REMICADE [Suspect]
     Dosage: HAS RECEIVED 3 DOSES
     Route: 042
  2. LACTASE [Concomitant]
     Route: 065
  3. REMICADE [Suspect]
     Route: 042
  4. CALCIUM CARBONATE [Concomitant]
     Route: 065
  5. NAPROXEN (ALEVE) [Concomitant]
     Route: 065
  6. ACETAMINOPHEN [Concomitant]
     Indication: PREMEDICATION
     Route: 065
  7. REMICADE [Suspect]
     Indication: PSORIASIS
     Route: 042
  8. FOLIC ACID [Concomitant]
     Route: 065
  9. DUONEB [Concomitant]
     Route: 065
  10. PROAIR HFA [Concomitant]
     Route: 065
  11. CLARITIN [Concomitant]
     Indication: PREMEDICATION
     Route: 065

REACTIONS (2)
  - INFUSION RELATED REACTION [None]
  - SWOLLEN TONGUE [None]
